FAERS Safety Report 9373759 (Version 3)
Quarter: 2013Q3

REPORT INFORMATION
  Report Type: Spontaneous
  Country: US (occurrence: US)
  Receive Date: 20130628
  Receipt Date: 20130923
  Transmission Date: 20140515
  Serious: Yes (Other)
  Sender: FDA-Public Use
  Company Number: US-ROCHE-1241434

PATIENT
  Age: 66 Year
  Sex: Male

DRUGS (26)
  1. LUCENTIS [Suspect]
     Indication: PRODUCT USED FOR UNKNOWN INDICATION
     Dosage: 0.3 MG/0.05 ML INTRAOCULAR INJECTION IN BOTH EYES
     Route: 031
     Dates: start: 20130620, end: 20130620
  2. ZOLOFT [Concomitant]
     Route: 048
  3. OMEPRAZOLE [Concomitant]
     Route: 048
  4. NOVOLOG [Concomitant]
     Route: 058
  5. CLARITIN [Concomitant]
     Indication: HYPERSENSITIVITY
     Route: 065
  6. HUMALOG [Concomitant]
     Route: 058
     Dates: start: 20120823
  7. CEPACOL [Concomitant]
     Indication: OROPHARYNGEAL PAIN
     Route: 048
     Dates: start: 20120818
  8. CLONIDINE [Concomitant]
     Route: 061
     Dates: start: 20120209
  9. COMBIGAN [Concomitant]
     Dosage: 1 DROP IN BOTH EYES
     Route: 065
     Dates: start: 20130118
  10. FAMOTIDINE [Concomitant]
     Route: 048
     Dates: start: 20130521
  11. FOLIC ACID [Concomitant]
     Route: 048
     Dates: start: 20130209
  12. DUREZOL [Concomitant]
     Dosage: 1 DROP RIGHT EYE DAILY FOR 2 WEEKS THEN STOP
     Route: 065
     Dates: start: 20120816
  13. GLIPIZIDE [Concomitant]
     Indication: DIABETES MELLITUS
     Route: 048
     Dates: start: 20121112
  14. METHOTREXATE [Concomitant]
     Indication: PSORIASIS
     Route: 048
     Dates: start: 20120912
  15. MIRALAX [Concomitant]
     Indication: CONSTIPATION
     Route: 048
     Dates: start: 20120209
  16. NEVANAC [Concomitant]
     Dosage: 1 DROP RIGHT EYE ONCE A DAY FOR 2 WEEK THEN STOP
     Route: 065
     Dates: start: 20120816
  17. NORVASC [Concomitant]
     Route: 048
     Dates: start: 20120209
  18. NOVOLOG [Concomitant]
     Dosage: 3 UNITS WITH MEALS
     Route: 058
     Dates: start: 20120907
  19. NOVOLOG [Concomitant]
     Route: 058
     Dates: start: 20120828
  20. PRED FORTE [Concomitant]
     Dosage: 1% BOTH EYES
     Route: 065
  21. CATAPRES [Concomitant]
     Route: 048
     Dates: start: 20120415
  22. ABILIFY [Concomitant]
     Route: 048
     Dates: start: 20120415
  23. BISACODYL [Concomitant]
     Indication: CONSTIPATION
     Route: 054
     Dates: start: 20120209
  24. MILK OF MAGNESIA [Concomitant]
     Indication: CONSTIPATION
     Route: 048
     Dates: start: 20120209
  25. MANTOUX TEST [Concomitant]
     Route: 048
     Dates: start: 20120209
  26. ACETAMINOPHEN [Concomitant]
     Indication: PAIN
     Route: 065

REACTIONS (5)
  - Non-infectious endophthalmitis [Recovered/Resolved]
  - Vision blurred [Recovered/Resolved]
  - Vitreous floaters [Recovered/Resolved]
  - Pain [Recovering/Resolving]
  - Product quality issue [Unknown]
